FAERS Safety Report 7362227-9 (Version None)
Quarter: 2011Q1

REPORT INFORMATION
  Report Type: 
  Country: None (occurrence: None)
  Receive Date: 20110318
  Receipt Date: 20110307
  Transmission Date: 20110831
  Serious: Yes (Other)
  Sender: FDA-Public Use
  Company Number: PHHY2011DE19233

PATIENT
  Sex: Male

DRUGS (3)
  1. OMEPRAZOLE [Concomitant]
     Indication: ABDOMINAL DISCOMFORT
     Dosage: UNK
  2. VOLTAREN [Suspect]
     Indication: INTERVERTEBRAL DISC PROTRUSION
     Dosage: UNK
  3. VOLTAREN [Suspect]
     Indication: INTERVERTEBRAL DISC PROTRUSION
     Dosage: 2 DF, TID
     Route: 048

REACTIONS (7)
  - CHEST PAIN [None]
  - BURNING SENSATION [None]
  - ANGINA PECTORIS [None]
  - RESPIRATORY TRACT INFECTION [None]
  - BURN OESOPHAGEAL [None]
  - OVERDOSE [None]
  - INFLUENZA LIKE ILLNESS [None]
